FAERS Safety Report 14471551 (Version 1)
Quarter: 2018Q1

REPORT INFORMATION
  Report Type: Spontaneous
  Country: US (occurrence: US)
  Receive Date: 20180131
  Receipt Date: 20180131
  Transmission Date: 20180509
  Serious: No
  Sender: FDA-Public Use
  Company Number: US-BIOGEN-2018BI00515286

PATIENT
  Sex: Female

DRUGS (1)
  1. TECFIDERA [Suspect]
     Active Substance: DIMETHYL FUMARATE
     Indication: MULTIPLE SCLEROSIS
     Route: 065
     Dates: start: 20160427

REACTIONS (8)
  - Tremor [Unknown]
  - Pain [Unknown]
  - Vomiting [Unknown]
  - Visual impairment [Unknown]
  - Prescribed underdose [Unknown]
  - Memory impairment [Unknown]
  - Cognitive disorder [Unknown]
  - Muscular weakness [Unknown]
